FAERS Safety Report 11468874 (Version 1)
Quarter: 2015Q3

REPORT INFORMATION
  Report Type: Spontaneous
  Country: US (occurrence: None)
  Receive Date: 20150828
  Receipt Date: 20150828
  Transmission Date: 20151125
  Serious: Yes (Hospitalization, Other)
  Sender: FDA-Public Use
  Company Number: AMAG201400497

PATIENT
  Age: 53 Year
  Sex: Female

DRUGS (1)
  1. FERAHEME [Suspect]
     Active Substance: FERUMOXYTOL NON-STOICHIOMETRIC MAGNETITE
     Indication: IRON DEFICIENCY ANAEMIA
     Dosage: IV PUSH
     Route: 042
     Dates: start: 20140926, end: 20140926

REACTIONS (4)
  - Flushing [None]
  - Agitation [None]
  - Unresponsive to stimuli [None]
  - Back pain [None]

NARRATIVE: CASE EVENT DATE: 20140926
